FAERS Safety Report 4941285-2 (Version None)
Quarter: 2006Q1

REPORT INFORMATION
  Report Type: 
  Country: None (occurrence: None)
  Receive Date: 20060313
  Receipt Date: 20051003
  Transmission Date: 20060701
  Serious: Yes (Hospitalization, Other)
  Sender: FDA-Public Use
  Company Number: US-MERCK-0510USA02696

PATIENT
  Age: 64 Year
  Sex: Female
  Weight: 85 kg

DRUGS (10)
  1. VIOXX [Suspect]
     Indication: ARTHRITIS
     Route: 048
     Dates: start: 20030904, end: 20040425
  2. ZOCOR [Concomitant]
     Route: 048
  3. HYZAAR [Concomitant]
     Route: 048
  4. [THERAPY UNSPECIFIED] [Concomitant]
     Route: 065
  5. WELLBUTRIN SR [Concomitant]
     Route: 048
  6. SINEQUAN [Concomitant]
     Route: 048
  7. MYCELEX [Concomitant]
     Indication: FUNGAL INFECTION
     Route: 065
  8. VICODIN [Concomitant]
     Indication: MUSCULOSKELETAL PAIN
     Route: 048
  9. VICODIN [Concomitant]
     Indication: SHOULDER PAIN
     Route: 048
  10. ESTROGENS (UNSPECIFIED) [Concomitant]
     Route: 048

REACTIONS (6)
  - ANXIETY [None]
  - DEPRESSION [None]
  - EMOTIONAL DISORDER [None]
  - MENTAL DISORDER [None]
  - MYOCARDIAL INFARCTION [None]
  - OEDEMA PERIPHERAL [None]
